FAERS Safety Report 8151517-8 (Version None)
Quarter: 2012Q1

REPORT INFORMATION
  Report Type: 
  Country: None (occurrence: None)
  Receive Date: 20120220
  Receipt Date: 20120208
  Transmission Date: 20120608
  Serious: Yes (Hospitalization, Other)
  Sender: FDA-Public Use
  Company Number: US-ELI_LILLY_AND_COMPANY-US201201002299

PATIENT
  Sex: Female
  Weight: 62.78 kg

DRUGS (1)
  1. FORTEO [Suspect]
     Dosage: 20 UG, QD
     Route: 058
     Dates: start: 20100423

REACTIONS (2)
  - HIP FRACTURE [None]
  - FALL [None]
